FAERS Safety Report 5103007-4 (Version None)
Quarter: 2006Q3

REPORT INFORMATION
  Report Type: 
  Country: None (occurrence: None)
  Receive Date: 20060912
  Receipt Date: 20060901
  Transmission Date: 20061208
  Serious: Yes (Other)
  Sender: FDA-Public Use
  Company Number: CH-MERCK-0609USA00804

PATIENT
  Age: 55 Year
  Sex: Male

DRUGS (2)
  1. DECADRON [Suspect]
     Indication: PROPHYLAXIS OF NAUSEA AND VOMITING
     Route: 048
     Dates: start: 20030101
  2. PREDNISONE [Suspect]
     Indication: PNEUMOCYSTIS JIROVECI PNEUMONIA
     Route: 065
     Dates: start: 20030101

REACTIONS (9)
  - BRAIN ABSCESS [None]
  - HERPES VIRUS INFECTION [None]
  - IMMUNOSUPPRESSION [None]
  - KAPOSI'S SARCOMA [None]
  - LEUKOPENIA [None]
  - LISTERIOSIS [None]
  - LYMPHOPENIA [None]
  - NEUTROPENIA [None]
  - PNEUMOCYSTIS JIROVECI PNEUMONIA [None]
